FAERS Safety Report 6944567-8 (Version None)
Quarter: 2010Q3

REPORT INFORMATION
  Report Type: 
  Country: None (occurrence: None)
  Receive Date: 20100827
  Receipt Date: 20100813
  Transmission Date: 20110219
  Serious: No
  Sender: FDA-Public Use
  Company Number: US-PFIZER INC-2010085965

PATIENT
  Sex: Female
  Weight: 113 kg

DRUGS (5)
  1. LIPITOR [Suspect]
     Indication: BLOOD CHOLESTEROL
     Dosage: 20 MG, DAILY
     Route: 048
  2. LIPITOR [Suspect]
     Indication: HYPERLIPIDAEMIA
  3. ALENDRONATE SODIUM [Suspect]
     Indication: OSTEOPENIA
     Dosage: 70 MG, WEEKLY
     Route: 048
     Dates: start: 20100101
  4. CALCIUM [Concomitant]
     Dosage: UNK
  5. FISH OIL [Concomitant]
     Dosage: UNK

REACTIONS (3)
  - ABDOMINAL DISTENSION [None]
  - SWELLING [None]
  - WEIGHT INCREASED [None]
